FAERS Safety Report 10027995 (Version 2)
Quarter: 2014Q1

REPORT INFORMATION
  Report Type: Spontaneous
  Country: US (occurrence: US)
  Receive Date: 20140321
  Receipt Date: 20140327
  Transmission Date: 20141002
  Serious: Yes (Hospitalization)
  Sender: FDA-Public Use
  Company Number: US-BAXTER-2014BAX013661

PATIENT
  Sex: Male

DRUGS (1)
  1. DIANEAL LOW CALCIUM [Suspect]
     Indication: RENAL FAILURE CHRONIC
     Route: 033
     Dates: start: 20140301, end: 20140303

REACTIONS (4)
  - Aortic aneurysm [Recovering/Resolving]
  - Post procedural complication [Recovering/Resolving]
  - Impaired healing [Recovering/Resolving]
  - Platelet count decreased [Recovering/Resolving]
